FAERS Safety Report 12166202 (Version 2)
Quarter: 2016Q1

REPORT INFORMATION
  Report Type: Spontaneous
  Country: US (occurrence: US)
  Receive Date: 20160309
  Receipt Date: 20160316
  Transmission Date: 20160526
  Serious: No
  Sender: FDA-Public Use
  Company Number: CHPA2016US002945

PATIENT
  Age: 54 Year
  Sex: Male

DRUGS (1)
  1. VOLTAREN [Suspect]
     Active Substance: DICLOFENAC SODIUM
     Indication: UPPER LIMB FRACTURE
     Dosage: A LITTLE BIT, UNK
     Route: 061
     Dates: start: 20160303, end: 20160305

REACTIONS (7)
  - Drug administered at inappropriate site [Unknown]
  - Abdominal pain upper [Recovering/Resolving]
  - Drug dispensed to wrong patient [Unknown]
  - Diarrhoea [Recovering/Resolving]
  - Product use issue [Unknown]
  - Decreased appetite [Recovering/Resolving]
  - Abdominal distension [Recovering/Resolving]

NARRATIVE: CASE EVENT DATE: 20160303
